APPROVED DRUG PRODUCT: DEPAKOTE
Active Ingredient: DIVALPROEX SODIUM
Strength: EQ 250MG VALPROIC ACID
Dosage Form/Route: TABLET, DELAYED RELEASE;ORAL
Application: N018723 | Product #001 | TE Code: AB
Applicant: ABBVIE INC
Approved: Mar 10, 1983 | RLD: Yes | RS: No | Type: RX